FAERS Safety Report 5022559-6 (Version None)
Quarter: 2006Q2

REPORT INFORMATION
  Report Type: 
  Country: None (occurrence: None)
  Receive Date: 20060605
  Receipt Date: 20060529
  Transmission Date: 20061013
  Serious: Yes (Other)
  Sender: FDA-Public Use
  Company Number: 2006-05-2397

PATIENT
  Age: 64 Year
  Sex: Male

DRUGS (1)
  1. AERIUS (DESLORATADINE) TABLETS [Suspect]
     Indication: PRURITUS
     Dosage: 5 MG QD; ORAL
     Route: 048
     Dates: start: 20060512, end: 20060520

REACTIONS (1)
  - DIPLOPIA [None]
